FAERS Safety Report 9788456 (Version 2)
Quarter: 2014Q1

REPORT INFORMATION
  Report Type: Spontaneous
  Country: FR (occurrence: FR)
  Receive Date: 20131230
  Receipt Date: 20140121
  Transmission Date: 20141002
  Serious: Yes (Hospitalization)
  Sender: FDA-Public Use
  Company Number: FR-PFIZER INC-2013369334

PATIENT
  Age: 42 Year
  Sex: Male

DRUGS (7)
  1. EUPANTOL [Suspect]
     Dosage: 20 MG, DAILY
     Route: 048
     Dates: start: 20131109, end: 20131114
  2. XARELTO [Suspect]
     Indication: PROPHYLAXIS
     Dosage: 10 MG, DAILY
     Route: 048
     Dates: start: 20131108, end: 20131113
  3. MIOREL [Suspect]
     Indication: MUSCLE CONTRACTURE
     Dosage: UNK
     Route: 048
     Dates: end: 20131113
  4. SKENAN [Suspect]
     Indication: PAIN
     Dosage: 10 MG, 2X/DAY
     Route: 048
     Dates: start: 20131108, end: 20131113
  5. PARACETAMOL [Suspect]
     Dosage: 3 G, DAILY
     Route: 048
     Dates: start: 20131108, end: 20131114
  6. TOPALGIC [Suspect]
     Dosage: 50 MG, 3X/DAY
     Route: 048
     Dates: start: 20131108, end: 20131112
  7. BI PROFENID [Suspect]
     Dosage: 200 MG, DAILY
     Route: 048
     Dates: start: 20131109, end: 20131111

REACTIONS (2)
  - Dyspepsia [Recovered/Resolved]
  - Nausea [Recovered/Resolved]
